FAERS Safety Report 4592290-X (Version None)
Quarter: 2005Q1

REPORT INFORMATION
  Report Type: 
  Country: None (occurrence: None)
  Receive Date: 20050228
  Receipt Date: 20041122
  Transmission Date: 20050727
  Serious: No
  Sender: FDA-Public Use
  Company Number: US-BRISTOL-MYERS SQUIBB COMPANY-12772380

PATIENT
  Age: 40 Year
  Sex: Male
  Weight: 117 kg

DRUGS (4)
  1. ABILIFY [Suspect]
     Indication: PSYCHOTIC DISORDER
     Dosage: INITIATED AT 7.5 MG/DAY ON 30-OCT-04, INCREASED TO 15 MG/DAY
     Route: 048
     Dates: start: 20041030
  2. LITHIUM [Concomitant]
  3. BLOOD PRESSURE MEDICATION [Concomitant]
  4. RISPERDAL [Concomitant]

REACTIONS (5)
  - ANXIETY [None]
  - FEAR [None]
  - INSOMNIA [None]
  - PARANOIA [None]
  - TREMOR [None]
